FAERS Safety Report 7988643-X (Version None)
Quarter: 2011Q4

REPORT INFORMATION
  Report Type: 
  Country: None (occurrence: None)
  Receive Date: 20111218
  Receipt Date: 20111206
  Transmission Date: 20120403
  Serious: Yes (Other)
  Sender: FDA-Public Use
  Company Number: GB-ASTRAZENECA-2011SE53688

PATIENT
  Sex: Female
  Weight: 63.5 kg

DRUGS (3)
  1. SEROQUEL [Suspect]
     Route: 048
  2. LAMOTRIGINE [Concomitant]
  3. OLANZAPINE [Concomitant]

REACTIONS (4)
  - GESTATIONAL DIABETES [None]
  - CHOLESTASIS [None]
  - PRE-ECLAMPSIA [None]
  - MATERNAL EXPOSURE DURING PREGNANCY [None]
